FAERS Safety Report 14997619 (Version 7)
Quarter: 2019Q2

REPORT INFORMATION
  Report Type: Report from Study
  Country: US (occurrence: US)
  Receive Date: 20180611
  Receipt Date: 20190402
  Transmission Date: 20190711
  Serious: Yes (Hospitalization, Other)
  Sender: FDA-Public Use
  Company Number: US-TAKEDA-2018TUS019185

PATIENT
  Age: 44 Year
  Sex: Female

DRUGS (3)
  1. TACROLIMUS. [Suspect]
     Active Substance: TACROLIMUS
     Indication: PRODUCT USED FOR UNKNOWN INDICATION
     Dosage: UNK
     Route: 065
  2. PONATINIB [Suspect]
     Active Substance: PONATINIB
     Indication: ACUTE LYMPHOCYTIC LEUKAEMIA (IN REMISSION)
     Dosage: 45 MG, QD
     Route: 048
     Dates: start: 201805
  3. PONATINIB [Suspect]
     Active Substance: PONATINIB
     Dosage: 15 MG, QD
     Route: 048

REACTIONS (6)
  - Seizure [Unknown]
  - Graft versus host disease [Unknown]
  - Respiratory syncytial virus infection [Unknown]
  - Colitis [Unknown]
  - Dry skin [Unknown]
  - Candida infection [Unknown]

NARRATIVE: CASE EVENT DATE: 201902
